FAERS Safety Report 23140970 (Version 1)
Quarter: 2023Q4

REPORT INFORMATION
  Report Type: Spontaneous
  Country: US (occurrence: US)
  Receive Date: 20231103
  Receipt Date: 20231103
  Transmission Date: 20240110
  Serious: No
  Sender: FDA-Public Use
  Company Number: US-BRISTOL-MYERS SQUIBB COMPANY-2023-156634

PATIENT
  Age: 68 Year
  Sex: Male

DRUGS (5)
  1. SPRYCEL [Suspect]
     Active Substance: DASATINIB
     Indication: Myeloid leukaemia
     Route: 048
  2. SPRYCEL [Suspect]
     Active Substance: DASATINIB
     Dosage: 2X70MG
     Route: 048
     Dates: start: 20231013
  3. ATORVASTATIN [Concomitant]
     Active Substance: ATORVASTATIN
  4. LISINOPRIL [Concomitant]
     Active Substance: LISINOPRIL
  5. METFORMIN [Concomitant]
     Active Substance: METFORMIN HYDROCHLORIDE

REACTIONS (1)
  - Off label use [Unknown]
